FAERS Safety Report 11026134 (Version 1)
Quarter: 2015Q2

REPORT INFORMATION
  Report Type: Spontaneous
  Country: IN (occurrence: IN)
  Receive Date: 20150414
  Receipt Date: 20150414
  Transmission Date: 20150821
  Serious: Yes (Hospitalization, Other)
  Sender: FDA-Public Use
  Company Number: IN-ACTAVIS-2015-07287

PATIENT
  Age: 55 Year
  Sex: Female

DRUGS (2)
  1. QUETIAPINE (UNKNOWN) [Suspect]
     Active Substance: QUETIAPINE
     Indication: AGITATION
     Dosage: 75 MG, DAILY
     Route: 065
  2. QUETIAPINE (UNKNOWN) [Suspect]
     Active Substance: QUETIAPINE
     Indication: INSOMNIA

REACTIONS (4)
  - Mental impairment [Unknown]
  - Hypersomnia [Unknown]
  - Social avoidant behaviour [Unknown]
  - Hypophagia [Unknown]
